FAERS Safety Report 7750392-0 (Version None)
Quarter: 2011Q3

REPORT INFORMATION
  Report Type: 
  Country: None (occurrence: None)
  Receive Date: 20110914
  Receipt Date: 20110902
  Transmission Date: 20111222
  Serious: Yes (Hospitalization)
  Sender: FDA-Public Use
  Company Number: JP-SANOFI-AVENTIS-2011SA058643

PATIENT

DRUGS (4)
  1. LANTUS [Suspect]
     Indication: SUICIDE ATTEMPT
     Route: 065
  2. LANTUS [Suspect]
     Indication: TYPE 2 DIABETES MELLITUS
     Route: 065
  3. LANTUS [Suspect]
     Dosage: MASSIVE INSULIN INJECTIONS
     Route: 065
  4. LANTUS [Suspect]
     Dosage: MASSIVE INSULIN INJECTIONS
     Route: 065

REACTIONS (3)
  - SUICIDE ATTEMPT [None]
  - BLOOD GLUCOSE DECREASED [None]
  - INTENTIONAL OVERDOSE [None]
